FAERS Safety Report 17036403 (Version 1)
Quarter: 2019Q4

REPORT INFORMATION
  Report Type: Spontaneous
  Country: US (occurrence: US)
  Receive Date: 20191114
  Receipt Date: 20191114
  Transmission Date: 20200122
  Serious: Yes (Disabling)
  Sender: FDA-Public Use
  Company Number: None

PATIENT
  Age: 51 Year
  Sex: Female
  Weight: 52.65 kg

DRUGS (1)
  1. RECLAST [Suspect]
     Active Substance: ZOLEDRONIC ACID
     Indication: OSTEOPOROSIS
     Dosage: ?          QUANTITY:1 INFUSION;OTHER FREQUENCY:ANNUAL;?
     Route: 042
     Dates: start: 20191030

REACTIONS (7)
  - Infusion related reaction [None]
  - Uveitis [None]
  - Influenza like illness [None]
  - Palpitations [None]
  - Heart rate increased [None]
  - Pyrexia [None]
  - Eye pain [None]

NARRATIVE: CASE EVENT DATE: 20191030
